FAERS Safety Report 19766609 (Version 3)
Quarter: 2023Q2

REPORT INFORMATION
  Report Type: Spontaneous
  Country: US (occurrence: US)
  Receive Date: 20210830
  Receipt Date: 20230512
  Transmission Date: 20230721
  Serious: Yes (Other)
  Sender: FDA-Public Use
  Company Number: US-PFIZER INC-202101069950

PATIENT
  Age: 47 Year
  Sex: Female

DRUGS (4)
  1. XELJANZ [Suspect]
     Active Substance: TOFACITINIB CITRATE
     Indication: Rheumatoid arthritis
     Dosage: 5 MG, 2X/DAY
     Route: 048
     Dates: start: 20210515, end: 2021
  2. XELJANZ [Suspect]
     Active Substance: TOFACITINIB CITRATE
     Dosage: 5 MG, 2X/DAY
     Route: 048
     Dates: start: 202109
  3. XELJANZ [Suspect]
     Active Substance: TOFACITINIB CITRATE
     Dosage: 5 MG, 2X/DAY
     Route: 048
     Dates: start: 202303
  4. RITALIN [Concomitant]
     Active Substance: METHYLPHENIDATE HYDROCHLORIDE
     Indication: Fatigue
     Dosage: UNK

REACTIONS (10)
  - Depression [Not Recovered/Not Resolved]
  - Product dose omission issue [Unknown]
  - Migraine [Not Recovered/Not Resolved]
  - Herpes zoster [Unknown]
  - Pain [Not Recovered/Not Resolved]
  - COVID-19 [Unknown]
  - Arthralgia [Unknown]
  - Peripheral swelling [Unknown]
  - Joint swelling [Unknown]
  - Pain in extremity [Not Recovered/Not Resolved]

NARRATIVE: CASE EVENT DATE: 20210101
